FAERS Safety Report 19197414 (Version 2)
Quarter: 2021Q2

REPORT INFORMATION
  Report Type: Spontaneous
  Country: US (occurrence: US)
  Receive Date: 20210430
  Receipt Date: 20210630
  Transmission Date: 20210717
  Serious: Yes (Other)
  Sender: FDA-Public Use
  Company Number: US-SPECGX-T202101095

PATIENT
  Age: 48 Year
  Sex: Female

DRUGS (1)
  1. METHADONE [Suspect]
     Active Substance: METHADONE HYDROCHLORIDE
     Indication: DRUG WITHDRAWAL MAINTENANCE THERAPY
     Dosage: 30 MILLIGRAM, QD
     Route: 065

REACTIONS (10)
  - Sinus tachycardia [Unknown]
  - Stress cardiomyopathy [Unknown]
  - Electrocardiogram QT prolonged [Unknown]
  - Accidental overdose [Unknown]
  - Respiratory failure [Unknown]
  - Toxicity to various agents [Unknown]
  - Sinus bradycardia [Unknown]
  - Mental status changes [Unknown]
  - Ventricular tachycardia [Unknown]
  - Torsade de pointes [Unknown]
